FAERS Safety Report 6388345-X (Version None)
Quarter: 2009Q4

REPORT INFORMATION
  Report Type: 
  Country: None (occurrence: None)
  Receive Date: 20091005
  Receipt Date: 20090928
  Transmission Date: 20100525
  Serious: Yes (Hospitalization)
  Sender: FDA-Public Use
  Company Number: US-MERCK-0909USA04519

PATIENT
  Age: 90 Year
  Sex: Female

DRUGS (4)
  1. COZAAR [Suspect]
     Indication: HYPERTENSION
     Route: 048
     Dates: start: 20050101
  2. COZAAR [Suspect]
     Route: 048
     Dates: start: 20090801
  3. COUMADIN [Concomitant]
     Route: 065
  4. TOPROL-XL [Concomitant]
     Route: 065

REACTIONS (3)
  - CAROTID ARTERY OCCLUSION [None]
  - COUGH [None]
  - RESPIRATORY DISORDER [None]
